FAERS Safety Report 5604890-6 (Version None)
Quarter: 2008Q1

REPORT INFORMATION
  Report Type: 
  Country: None (occurrence: None)
  Receive Date: 20080128
  Receipt Date: 20080117
  Transmission Date: 20080703
  Serious: Yes (Hospitalization)
  Sender: FDA-Public Use
  Company Number: US-PFIZER INC-2007075977

PATIENT
  Sex: Female
  Weight: 73.5 kg

DRUGS (2)
  1. SUTENT [Suspect]
     Indication: LUNG NEOPLASM MALIGNANT
     Route: 048
     Dates: start: 20070430, end: 20070831
  2. TAXOTERE [Suspect]
     Indication: LUNG NEOPLASM MALIGNANT
     Route: 042
     Dates: start: 20070430, end: 20070822

REACTIONS (2)
  - PROCTALGIA [None]
  - PYREXIA [None]
